FAERS Safety Report 17751867 (Version 1)
Quarter: 2020Q2

REPORT INFORMATION
  Report Type: Spontaneous
  Country: CA (occurrence: CA)
  Receive Date: 20200506
  Receipt Date: 20200506
  Transmission Date: 20200714
  Serious: Yes (Hospitalization)
  Sender: FDA-Public Use
  Company Number: CA-BAXTER-2020BAX009189

PATIENT
  Sex: Female

DRUGS (2)
  1. 5 FLUOROURACIL [Suspect]
     Active Substance: FLUOROURACIL
     Indication: PRODUCT USED FOR UNKNOWN INDICATION
     Route: 065
     Dates: start: 20200407
  2. 5% DEXTROSE INJECTION [Suspect]
     Active Substance: DEXTROSE
     Indication: MEDICATION DILUTION
     Route: 065
     Dates: start: 20200407

REACTIONS (3)
  - Neutropenia [Unknown]
  - Nausea [Unknown]
  - Ileus [Unknown]

NARRATIVE: CASE EVENT DATE: 20200408
